FAERS Safety Report 9776188 (Version 4)
Quarter: 2014Q3

REPORT INFORMATION
  Report Type: Spontaneous
  Country: US (occurrence: US)
  Receive Date: 20131220
  Receipt Date: 20140701
  Transmission Date: 20150326
  Serious: Yes (Life-Threatening, Hospitalization)
  Sender: FDA-Public Use
  Company Number: US-ACTELION-A-US2013-92492

PATIENT
  Age: 67 Year
  Sex: Female

DRUGS (28)
  1. PREDNISONE. [Concomitant]
     Active Substance: PREDNISONE
     Dosage: 30 MG, UNK
  2. DEXILANT [Concomitant]
     Active Substance: DEXLANSOPRAZOLE
     Dosage: 60 MG, UNK
  3. NORCO [Concomitant]
     Active Substance: ACETAMINOPHEN\HYDROCODONE BITARTRATE
     Dosage: 5-325 MG EVERY 6 HOURS
  4. COUMADIN [Concomitant]
     Active Substance: WARFARIN SODIUM
  5. SYMBICORT [Concomitant]
     Active Substance: BUDESONIDE\FORMOTEROL FUMARATE DIHYDRATE
     Dosage: 160/4.5
  6. PRAVASTATIN [Concomitant]
     Active Substance: PRAVASTATIN\PRAVASTATIN SODIUM
     Dosage: 20 MG, UNK
  7. SPIRONOLACTONE. [Concomitant]
     Active Substance: SPIRONOLACTONE
     Dosage: 25 MG, 1/2 TAB IN MORNING
  8. LEXAPRO [Concomitant]
     Active Substance: ESCITALOPRAM OXALATE
     Dosage: 10 MG, QD
  9. ALBUTEROL. [Concomitant]
     Active Substance: ALBUTEROL
     Dosage: 1 VIAL, PRN
  10. ASPIRIN. [Concomitant]
     Active Substance: ASPIRIN
     Dosage: 81 MG, UNK
  11. FLONASE [Concomitant]
     Active Substance: FLUTICASONE PROPIONATE
     Dosage: 2 UNK, Q12HRS
  12. VITAMIN D3 [Concomitant]
     Active Substance: CHOLECALCIFEROL
     Dosage: 100 MCG, QD
     Dates: start: 20140517
  13. DIAZEPAM. [Concomitant]
     Active Substance: DIAZEPAM
     Dosage: 2.5 MG, PRN
  14. TRACLEER [Suspect]
     Active Substance: BOSENTAN\BOSENTAN MONOHYDRATE
     Indication: PULMONARY ARTERIAL HYPERTENSION
     Dosage: UNK UNK, BID
     Route: 048
  15. LASIX [Concomitant]
     Active Substance: FUROSEMIDE
     Dosage: 40 MG, UNK
  16. TRACLEER [Suspect]
     Active Substance: BOSENTAN\BOSENTAN MONOHYDRATE
     Dosage: 125 MG, BID
     Route: 048
  17. REVATIO [Concomitant]
     Active Substance: SILDENAFIL CITRATE
     Dosage: 20 MG, TID
  18. MUCINEX [Concomitant]
     Active Substance: GUAIFENESIN
     Dosage: 600 MG, UNK
  19. KLOR CON [Concomitant]
     Dosage: 20 MG, UNK
  20. LETAIRIS [Suspect]
     Active Substance: AMBRISENTAN
     Dosage: UNK
     Route: 048
     Dates: start: 201308, end: 201308
  21. LIDODERM [Concomitant]
     Active Substance: LIDOCAINE
     Dosage: 1-3 PATCHES, 12 HOURS ON
  22. COREG [Concomitant]
     Active Substance: CARVEDILOL
     Dosage: 3.125 MG, QPM
  23. BACLOFEN. [Concomitant]
     Active Substance: BACLOFEN
     Dosage: 5 MG 8AM DAILY, 10 MG 3 AND 10 PM DAILY
  24. RESTASIS [Concomitant]
     Active Substance: CYCLOSPORINE
     Dosage: 0.05% 1 GTT EACH EYE BID
  25. BONIVA [Concomitant]
     Active Substance: IBANDRONATE SODIUM
     Dosage: 150 MG, Q1MONTH
  26. ALLEGRA [Concomitant]
     Active Substance: FEXOFENADINE HYDROCHLORIDE
     Dosage: 180 MG, UNK
  27. VITAMIN B12 [Concomitant]
     Active Substance: CYANOCOBALAMIN
     Dosage: 500 MG, UNK
  28. VENTOLIN [Concomitant]
     Active Substance: ALBUTEROL SULFATE
     Dosage: 2 PUFF, PRN

REACTIONS (13)
  - Dyspnoea [Recovering/Resolving]
  - Pain in jaw [Recovering/Resolving]
  - Ear pain [Recovering/Resolving]
  - Deep vein thrombosis [Recovering/Resolving]
  - Oxygen saturation decreased [Recovering/Resolving]
  - Fluid retention [Unknown]
  - Diplopia [Recovering/Resolving]
  - Dizziness [Recovering/Resolving]
  - Pulmonary embolism [Recovering/Resolving]
  - Iritis [Recovering/Resolving]
  - Catheterisation cardiac abnormal [Unknown]
  - Cardiac failure [Unknown]
  - Eye swelling [Recovering/Resolving]

NARRATIVE: CASE EVENT DATE: 201308
